FAERS Safety Report 4502813-4 (Version None)
Quarter: 2004Q4

REPORT INFORMATION
  Report Type: 
  Country: None (occurrence: None)
  Receive Date: 20041112
  Receipt Date: 20041029
  Transmission Date: 20050328
  Serious: Yes (Death)
  Sender: FDA-Public Use
  Company Number: K200401696

PATIENT
  Age: 42 Year
  Sex: Male

DRUGS (5)
  1. SONATA [Suspect]
     Dates: end: 20040501
  2. TRAZODONE HCL [Concomitant]
  3. ATENOLOL [Concomitant]
  4. RISPERDAL [Concomitant]
  5. RETROVIR [Concomitant]

REACTIONS (4)
  - COMA [None]
  - COMPLETED SUICIDE [None]
  - DYSARTHRIA [None]
  - OVERDOSE [None]
